FAERS Safety Report 19561042 (Version 2)
Quarter: 2021Q3

REPORT INFORMATION
  Report Type: Spontaneous
  Country: IE (occurrence: IE)
  Receive Date: 20210716
  Receipt Date: 20210729
  Transmission Date: 20211014
  Serious: Yes (Other)
  Sender: FDA-Public Use
  Company Number: IE-NOVOPROD-828810

PATIENT
  Age: 12 Year
  Sex: Male

DRUGS (1)
  1. NORDITROPIN [Suspect]
     Active Substance: SOMATROPIN
     Indication: PRODUCT USED FOR UNKNOWN INDICATION
     Dosage: 0.10 MG, QD
     Route: 065

REACTIONS (3)
  - Seizure [Unknown]
  - Fear of injection [Unknown]
  - Injury [Unknown]
